FAERS Safety Report 18181010 (Version 8)
Quarter: 2022Q3

REPORT INFORMATION
  Report Type: Report from Study
  Country: PL (occurrence: PL)
  Receive Date: 20200821
  Receipt Date: 20220701
  Transmission Date: 20221027
  Serious: Yes (Hospitalization)
  Sender: FDA-Public Use
  Company Number: PL-PFIZER INC-2020319568

PATIENT
  Age: 49 Year
  Sex: Male
  Weight: 120 kg

DRUGS (17)
  1. AXITINIB [Suspect]
     Active Substance: AXITINIB
     Indication: Metastatic renal cell carcinoma
     Dosage: 5 MG, 2X/DAY (STARTING DOSE: 5 MG TWICE DAILY (BID), FLUCTUATED DOSAGE)
     Route: 048
     Dates: start: 20170927, end: 20200728
  2. AXITINIB [Suspect]
     Active Substance: AXITINIB
     Dosage: 1.5 MILLIGRAM, BID
     Route: 048
     Dates: start: 20200811, end: 20200811
  3. AXITINIB [Suspect]
     Active Substance: AXITINIB
     Dosage: 1.5 MG, 2X/DAY(STARTING DOSE AT 1.5 MG BID, FLUCTUATED DOSAGE)
     Route: 048
     Dates: start: 20200824, end: 20210127
  4. AXITINIB [Suspect]
     Active Substance: AXITINIB
     Dosage: 6 MG, BID, FLUCTUATED DOSAGE
     Route: 048
     Dates: start: 20210128
  5. PEMBROLIZUMAB [Suspect]
     Active Substance: PEMBROLIZUMAB
     Indication: Metastatic renal cell carcinoma
     Dosage: 200 MILLIGRAM, Q3W
     Route: 042
     Dates: start: 20170927, end: 20190826
  6. PEMBROLIZUMAB [Suspect]
     Active Substance: PEMBROLIZUMAB
     Dosage: 200 MILLIGRAM, Q3W
     Route: 042
     Dates: start: 20190912, end: 20190912
  7. NEBILENIN [Concomitant]
     Dosage: 5 MILLIGRAM
     Dates: start: 200601
  8. ACTELSAR [Concomitant]
     Dosage: 80 MILLIGRAM
     Dates: start: 200601, end: 20220130
  9. FENOFIBRATE [Concomitant]
     Active Substance: FENOFIBRATE
     Dosage: 160 MILLIGRAM
     Dates: start: 201401, end: 20220130
  10. LACIDIPINE [Concomitant]
     Active Substance: LACIDIPINE
     Dosage: 4 MILLIGRAM
     Dates: start: 20171004, end: 20220130
  11. EFFERALGAN [Concomitant]
     Active Substance: ACETAMINOPHEN
     Dosage: 1000 MILLIGRAM
     Dates: start: 20170927
  12. POSTERISAN [ESCHERICHIA COLI] [Concomitant]
     Dosage: UNK
     Dates: start: 20190121, end: 20220130
  13. ATROPINE SULFATE\DIPHENOXYLATE HYDROCHLORIDE [Concomitant]
     Active Substance: ATROPINE SULFATE\DIPHENOXYLATE HYDROCHLORIDE
     Dosage: 1 DOSAGE FORM
     Dates: start: 20190711, end: 20220130
  14. ENOXAPARIN SODIUM [Concomitant]
     Active Substance: ENOXAPARIN SODIUM
     Indication: Pulmonary thrombosis
     Dosage: 120 MILLIGRAM
     Dates: start: 20190919, end: 20220130
  15. COLINOX [Concomitant]
     Dosage: 1 DOSAGE FORM
     Route: 048
     Dates: start: 20191031, end: 20220130
  16. LORINDEN A [FLUMETASONE PIVALATE;SALICYLIC ACID] [Concomitant]
     Dosage: UNK
     Dates: start: 20200204, end: 20220130
  17. ARGOSULFAN [Concomitant]
     Dosage: UNK
     Dates: start: 20200204, end: 20220130

REACTIONS (1)
  - Pulmonary thrombosis [Recovered/Resolved]

NARRATIVE: CASE EVENT DATE: 20200811
